FAERS Safety Report 21306347 (Version 1)
Quarter: 2022Q3

REPORT INFORMATION
  Report Type: Spontaneous
  Country: NP (occurrence: NP)
  Receive Date: 20220908
  Receipt Date: 20220908
  Transmission Date: 20221027
  Serious: Yes (Hospitalization)
  Sender: FDA-Public Use
  Company Number: NP-NOVARTISPH-NVSC2022NP201874

PATIENT
  Sex: Female

DRUGS (1)
  1. GLIVEC [Suspect]
     Active Substance: IMATINIB MESYLATE
     Indication: Chronic myeloid leukaemia
     Dosage: 400 MG  (4X 100 MG TABLETS)
     Route: 065

REACTIONS (3)
  - Dengue fever [Unknown]
  - Asthenia [Unknown]
  - Pyrexia [Unknown]
